FAERS Safety Report 7793461-1 (Version None)
Quarter: 2011Q4

REPORT INFORMATION
  Report Type: 
  Country: None (occurrence: None)
  Receive Date: 20111003
  Receipt Date: 20110929
  Transmission Date: 20120403
  Serious: Yes (Life-Threatening)
  Sender: FDA-Public Use
  Company Number: PHHY2011GB86208

PATIENT
  Age: 49 Year
  Sex: Male
  Weight: 128 kg

DRUGS (6)
  1. ASPIRIN [Concomitant]
     Dosage: UNK UKN, UNK
  2. CO-DYDRAMOL [Concomitant]
     Indication: BACK PAIN
     Dosage: UNK UKN, UNK
     Dates: start: 20070106
  3. SIMVASTATIN [Suspect]
     Indication: HYPERCHOLESTEROLAEMIA
     Dosage: 40 MG, UNK
     Route: 048
     Dates: start: 20080814, end: 20110914
  4. METFORMIN HCL [Concomitant]
     Indication: DIABETES MELLITUS
     Dosage: TWICE A DAY
     Route: 048
     Dates: start: 20081218
  5. VICTOZA [Interacting]
     Indication: DIABETES MELLITUS
     Dosage: 12 MG, UNK
     Route: 058
     Dates: start: 20110408
  6. RAMIPRIL [Concomitant]
     Indication: HYPERTENSION
     Dosage: 2.8 MG, UNK
     Dates: start: 20100407

REACTIONS (4)
  - BLOOD CREATINE PHOSPHOKINASE INCREASED [None]
  - MYOSITIS [None]
  - MUSCULOSKELETAL PAIN [None]
  - DRUG INTERACTION [None]
